FAERS Safety Report 8824588 (Version 1)
Quarter: 2012Q4

REPORT INFORMATION
  Report Type: 
  Country: US (occurrence: US)
  Receive Date: 20121004
  Receipt Date: 20121004
  Transmission Date: 20130627
  Serious: No
  Sender: FDA-Public Use
  Company Number: US-009507513-1210USA000328

PATIENT
  Age: 38 Year
  Sex: Female
  Weight: 54.42 kg

DRUGS (1)
  1. NUVARING [Suspect]
     Dosage: 1 ring for 3 weeks then a week free break,UNK
     Route: 067
     Dates: start: 2007

REACTIONS (1)
  - Inappropriate schedule of drug administration [Unknown]
